FAERS Safety Report 8615980-8 (Version None)
Quarter: 2012Q3

REPORT INFORMATION
  Report Type: 
  Country: None (occurrence: None)
  Receive Date: 20120823
  Receipt Date: 20120820
  Transmission Date: 20120928
  Serious: No
  Sender: FDA-Public Use
  Company Number: US-PFIZER INC-2012204250

PATIENT
  Age: 53 Year
  Sex: Female
  Weight: 90.703 kg

DRUGS (9)
  1. OMEPRAZOLE [Concomitant]
     Dosage: UNK
  2. LYRICA [Suspect]
     Dosage: 75 MG, 2X/DAY
     Route: 048
     Dates: start: 20120701, end: 20120804
  3. DOXYCYCLINE [Concomitant]
     Dosage: UNK
  4. LYRICA [Suspect]
     Dosage: 75 MG, 1X/DAY
     Route: 048
     Dates: start: 20120817
  5. LYRICA [Suspect]
     Dosage: 100 MG, 2X/DAY
     Route: 048
     Dates: start: 20120805, end: 20120816
  6. BACLOFEN [Concomitant]
     Dosage: UNK
  7. LYRICA [Suspect]
     Indication: FIBROMYALGIA
     Dosage: 50 MG, 2X/DAY
     Route: 048
     Dates: start: 20120626, end: 20120701
  8. TRAZODONE [Concomitant]
     Dosage: UNK
  9. VERAPAMIL [Concomitant]
     Dosage: UNK

REACTIONS (2)
  - URINARY INCONTINENCE [None]
  - PAIN [None]
